FAERS Safety Report 8353374-3 (Version None)
Quarter: 2012Q2

REPORT INFORMATION
  Report Type: 
  Country: None (occurrence: None)
  Receive Date: 20120511
  Receipt Date: 20120503
  Transmission Date: 20120825
  Serious: Yes (Other)
  Sender: FDA-Public Use
  Company Number: CA-ASTRAZENECA-2012SE25642

PATIENT
  Age: 40 Year
  Sex: Male

DRUGS (11)
  1. SEROQUEL [Suspect]
     Indication: DYSPHONIA
     Route: 048
     Dates: start: 20110201
  2. SEROQUEL [Suspect]
     Route: 048
  3. SEROQUEL [Suspect]
     Route: 048
  4. SEROQUEL [Suspect]
     Route: 048
  5. SEROQUEL [Suspect]
     Route: 048
  6. SEROQUEL [Suspect]
     Indication: SLEEP DISORDER
     Route: 048
     Dates: start: 20110201
  7. AMITRIPTYLINE HCL [Concomitant]
     Dates: start: 20120401
  8. SEROQUEL [Suspect]
     Indication: MAJOR DEPRESSION
     Route: 048
     Dates: start: 20110201
  9. SEROQUEL [Suspect]
     Route: 048
  10. SEROQUEL [Suspect]
     Route: 048
  11. RAMIPRIL [Concomitant]
     Dates: start: 20110101

REACTIONS (2)
  - INTENTIONAL DRUG MISUSE [None]
  - MIGRAINE WITH AURA [None]
